FAERS Safety Report 17330111 (Version 3)
Quarter: 2020Q1

REPORT INFORMATION
  Report Type: Spontaneous
  Country: JP (occurrence: JP)
  Receive Date: 20200128
  Receipt Date: 20200303
  Transmission Date: 20200409
  Serious: Yes (Other)
  Sender: FDA-Public Use
  Company Number: JP-SA-2020SA022585

PATIENT
  Age: 77 Year
  Sex: Male
  Weight: 51.4 kg

DRUGS (14)
  1. KOLBET [Concomitant]
     Active Substance: IGURATIMOD
     Dosage: 50 MG/DAY
     Dates: start: 20150317
  2. MEROPENEM. [Suspect]
     Active Substance: MEROPENEM
     Indication: ATYPICAL MYCOBACTERIAL INFECTION
     Dosage: UNK
     Dates: start: 2018, end: 2018
  3. KOLBET [Concomitant]
     Active Substance: IGURATIMOD
     Indication: RHEUMATOID ARTHRITIS
     Dosage: 25 MG, QD
     Dates: start: 20141209
  4. THYRADIN [Concomitant]
     Active Substance: LEVOTHYROXINE
     Indication: ATROPHIC THYROIDITIS
  5. PREDONINE [Concomitant]
     Active Substance: PREDNISOLONE
     Indication: RHEUMATOID ARTHRITIS
     Dosage: 2 MG, QD
     Route: 048
     Dates: start: 20160610
  6. RIFADIN [Suspect]
     Active Substance: RIFAMPIN
     Indication: ATYPICAL MYCOBACTERIAL INFECTION
     Dosage: 600 MG, QD
     Route: 065
     Dates: start: 20180530, end: 20180626
  7. ETHAMBUTOL [Suspect]
     Active Substance: ETHAMBUTOL HYDROCHLORIDE
     Indication: ATYPICAL MYCOBACTERIAL INFECTION
     Dosage: 750 MG, QOD
     Dates: start: 20180530, end: 20180626
  8. AMPICILLIN [Suspect]
     Active Substance: AMPICILLIN
     Indication: ATYPICAL MYCOBACTERIAL INFECTION
     Dosage: UNK
     Dates: start: 2018, end: 2018
  9. VANCOMYCIN HYDROCHLORIDE. [Suspect]
     Active Substance: VANCOMYCIN HYDROCHLORIDE
     Indication: ATYPICAL MYCOBACTERIAL INFECTION
     Dosage: UNK
     Dates: start: 2018, end: 2018
  10. THYRADIN [Concomitant]
     Active Substance: LEVOTHYROXINE
     Indication: PRIMARY HYPOTHYROIDISM
     Dosage: UNK
     Dates: start: 2015
  11. GANCICLOVIR. [Concomitant]
     Active Substance: GANCICLOVIR
     Indication: CYTOMEGALOVIRUS INFECTION
  12. CLARITHROMYCIN. [Suspect]
     Active Substance: CLARITHROMYCIN
     Indication: ATYPICAL MYCOBACTERIAL INFECTION
     Dosage: 400 MG, QD
     Dates: start: 20180530, end: 20180626
  13. LEVOFLOXACIN. [Suspect]
     Active Substance: LEVOFLOXACIN
     Indication: ATYPICAL MYCOBACTERIAL INFECTION
     Dosage: 600 MG, QD
     Dates: start: 2018, end: 2018
  14. PREDONINE [Concomitant]
     Active Substance: PREDNISOLONE
     Indication: GLOMERULONEPHRITIS RAPIDLY PROGRESSIVE
     Dosage: 5 MG, QD
     Route: 048
     Dates: start: 20170418

REACTIONS (5)
  - Adrenal insufficiency [Unknown]
  - Hepatic enzyme increased [Unknown]
  - Pyrexia [Unknown]
  - Rash [Unknown]
  - Diarrhoea [Unknown]

NARRATIVE: CASE EVENT DATE: 2018
